FAERS Safety Report 8511521-4 (Version None)
Quarter: 2012Q3

REPORT INFORMATION
  Report Type: 
  Country: None (occurrence: None)
  Receive Date: 20120716
  Receipt Date: 20120711
  Transmission Date: 20120928
  Serious: Yes (Hospitalization, Other)
  Sender: FDA-Public Use
  Company Number: US-PFIZER INC-2012166951

PATIENT
  Sex: Female
  Weight: 71.202 kg

DRUGS (4)
  1. VALIUM [Concomitant]
     Dosage: 5 MG, 2X/DAY
     Route: 048
  2. PRISTIQ [Suspect]
     Indication: DEPRESSION
     Dosage: 50 MG, 1X/DAY
     Route: 048
     Dates: start: 20120101, end: 20120101
  3. FLUVOXAMINE [Concomitant]
     Dosage: UNK
  4. PRISTIQ [Suspect]
     Indication: ANXIETY
     Dosage: 100 MG, 1X/DAY
     Route: 048
     Dates: start: 20120101

REACTIONS (6)
  - OBSESSIVE-COMPULSIVE DISORDER [None]
  - MENTAL DISORDER [None]
  - SELF-INJURIOUS IDEATION [None]
  - ANXIETY [None]
  - EMOTIONAL DISORDER [None]
  - MALAISE [None]
